FAERS Safety Report 11276616 (Version 5)
Quarter: 2016Q2

REPORT INFORMATION
  Report Type: Spontaneous
  Country: US (occurrence: US)
  Receive Date: 20150716
  Receipt Date: 20160527
  Transmission Date: 20160815
  Serious: No
  Sender: FDA-Public Use
  Company Number: US-PFIZER INC-2015234185

PATIENT
  Age: 78 Year
  Sex: Female
  Weight: 50 kg

DRUGS (17)
  1. LYRICA [Suspect]
     Active Substance: PREGABALIN
     Indication: NEURALGIA
     Dosage: 75 MG, 2X/DAY
  2. OXYCODONE [Concomitant]
     Active Substance: OXYCODONE
     Indication: PAIN
     Dosage: 5 MG, 3X/DAY
  3. LISINOPRIL. [Concomitant]
     Active Substance: LISINOPRIL
     Indication: BLOOD PRESSURE MEASUREMENT
     Dosage: 10 MG, 3X/DAY (ONE TABLET BY MOUTH IN THE MORNING, TWO TABLETS AT NIGHT)
  4. LANSOPRAZOLE. [Concomitant]
     Active Substance: LANSOPRAZOLE
     Indication: DYSPEPSIA
     Dosage: 30 MG, 1X/DAY
     Route: 048
  5. CLONIDINE. [Concomitant]
     Active Substance: CLONIDINE
     Indication: BLOOD PRESSURE MEASUREMENT
     Dosage: 0.1 MG, 1X/DAY (ONE TABLET BY MOUTH ONCE AT NIGHT)
     Route: 048
  6. LYRICA [Suspect]
     Active Substance: PREGABALIN
     Indication: ARTHROPATHY
     Dosage: 100 MG, 3X/DAY
     Route: 048
  7. SENNA S [Concomitant]
     Active Substance: DOCUSATE SODIUM\SENNA LEAF
     Indication: CONSTIPATION
     Dosage: UNK (ONE TABLET BY MOUTH IN THE MORNING, AND TWO TABLETS AT NIGHT)
  8. AMLODIPINE BESYLATE. [Concomitant]
     Active Substance: AMLODIPINE BESYLATE
     Indication: BLOOD PRESSURE MEASUREMENT
     Dosage: 5 MG, 1X/DAY (1/2 TABLET BY MOUTH ONCE A DAY)
  9. CALCIUM WITH VITAMIN D [Concomitant]
     Active Substance: CALCIUM\VITAMIN D
     Indication: CALCIUM DEFICIENCY
     Dosage: 2 DF, 2X/DAY (ONE TABLET BY MOUTH IN THE MORNING AND ONE TABLET AT)
     Route: 048
  10. SUCRALFATE. [Concomitant]
     Active Substance: SUCRALFATE
     Indication: GASTROOESOPHAGEAL REFLUX DISEASE
     Dosage: 1 G, 4X/DAY
  11. LYRICA [Suspect]
     Active Substance: PREGABALIN
     Indication: SPINAL FUSION SURGERY
  12. GABAPENTIN. [Concomitant]
     Active Substance: GABAPENTIN
     Indication: NEURALGIA
     Dosage: 300 MG, 3X/DAY
  13. GABAPENTIN. [Concomitant]
     Active Substance: GABAPENTIN
     Indication: DEPRESSION
     Dosage: 9 DF, DAILY
  14. LYRICA [Suspect]
     Active Substance: PREGABALIN
     Indication: LUMBAR RADICULOPATHY
  15. LORAZEPAM. [Concomitant]
     Active Substance: LORAZEPAM
     Indication: ANXIETY
     Dosage: 0.5 MG, UNK (ONE TABLET BY MOUTH IN THE MORNING)
     Route: 048
  16. TEMAZEPAM. [Concomitant]
     Active Substance: TEMAZEPAM
     Indication: INSOMNIA
     Dosage: 30 MG, 1X/DAY (ONE CAPSULE BY MOUTH ONCE EACH NIGHT)
     Route: 048
  17. METOPROLOL. [Concomitant]
     Active Substance: METOPROLOL
     Indication: BLOOD PRESSURE MEASUREMENT
     Dosage: 100 MG, 1X/DAY
     Route: 048

REACTIONS (1)
  - Drug ineffective [Not Recovered/Not Resolved]
